FAERS Safety Report 19098767 (Version 2)
Quarter: 2021Q2

REPORT INFORMATION
  Report Type: Spontaneous
  Country: US (occurrence: US)
  Receive Date: 20210406
  Receipt Date: 20210412
  Transmission Date: 20210717
  Serious: Yes (Other)
  Sender: FDA-Public Use
  Company Number: US-SA-2021SA106313

PATIENT
  Age: 19 Year
  Sex: Male

DRUGS (2)
  1. CLOPIDOGREL BISULFATE. [Suspect]
     Active Substance: CLOPIDOGREL BISULFATE
     Dosage: 75 MG, QD
  2. CLOPIDOGREL BISULFATE. [Suspect]
     Active Substance: CLOPIDOGREL BISULFATE
     Indication: SUBARACHNOID HAEMORRHAGE
     Dosage: 150 MG
     Route: 065

REACTIONS (13)
  - Lung infiltration [Recovering/Resolving]
  - Dizziness [Recovering/Resolving]
  - Acute respiratory distress syndrome [Recovering/Resolving]
  - White blood cell count increased [Recovering/Resolving]
  - Pneumonia [Recovering/Resolving]
  - Hypotension [Recovering/Resolving]
  - Dyspnoea exertional [Recovering/Resolving]
  - Pulmonary oedema [Recovering/Resolving]
  - Syncope [Recovering/Resolving]
  - Rales [Recovering/Resolving]
  - Depressed level of consciousness [Recovering/Resolving]
  - Somnolence [Recovering/Resolving]
  - Hypoxia [Recovering/Resolving]
